FAERS Safety Report 5805583-2 (Version None)
Quarter: 2008Q3

REPORT INFORMATION
  Report Type: 
  Country: None (occurrence: None)
  Receive Date: 20080708
  Receipt Date: 20080708
  Transmission Date: 20090109
  Serious: No
  Sender: FDA-Public Use
  Company Number: None

PATIENT
  Sex: Female
  Weight: 25 kg

DRUGS (4)
  1. CISPLATIN [Suspect]
     Indication: MEDULLOBLASTOMA
     Dosage: 3.5MG/KG, X 1 D, X 2 D IV DRIP
     Route: 041
     Dates: start: 20080429, end: 20080505
  2. CYCLOPHOSPHAMIDE [Suspect]
     Dosage: 55MG/KG/DAY X 1 D, X 2 D IV DRIP
     Route: 041
  3. VINCRISTINE [Suspect]
     Dosage: 0.5MG/KG, 4MG/KG/D, 27 0MG/KG WKLY X 2, X 2D, XL IV DRIP
     Route: 041
  4. ETOPOSIDE [Suspect]

REACTIONS (2)
  - PAPILLOEDEMA [None]
  - TUMOUR NECROSIS [None]
